FAERS Safety Report 4673935-2 (Version None)
Quarter: 2005Q2

REPORT INFORMATION
  Report Type: 
  Country: None (occurrence: None)
  Receive Date: 20050524
  Receipt Date: 20050505
  Transmission Date: 20051028
  Serious: Yes (Other)
  Sender: FDA-Public Use
  Company Number: GBS050417050

PATIENT
  Sex: Female

DRUGS (2)
  1. OLANZAPINE [Suspect]
  2. RISPERIDONE [Concomitant]

REACTIONS (1)
  - NO ADVERSE EFFECT [None]
